FAERS Safety Report 23246124 (Version 2)
Quarter: 2024Q1

REPORT INFORMATION
  Report Type: Spontaneous
  Country: US (occurrence: US)
  Receive Date: 20231130
  Receipt Date: 20240111
  Transmission Date: 20240410
  Serious: No
  Sender: FDA-Public Use
  Company Number: US-BRISTOL-MYERS SQUIBB COMPANY-2023-172941

PATIENT
  Age: 79 Year
  Sex: Male
  Weight: 69.4 kg

DRUGS (1)
  1. REVLIMID [Suspect]
     Active Substance: LENALIDOMIDE
     Indication: Plasma cell myeloma

REACTIONS (4)
  - Malaise [Unknown]
  - Skin exfoliation [Unknown]
  - Productive cough [Unknown]
  - Off label use [Unknown]
